FAERS Safety Report 7361502-1 (Version None)
Quarter: 2011Q1

REPORT INFORMATION
  Report Type: 
  Country: None (occurrence: None)
  Receive Date: 20110318
  Receipt Date: 20110307
  Transmission Date: 20110831
  Serious: Yes (Hospitalization, Other)
  Sender: FDA-Public Use
  Company Number: PHRM2007FR01000

PATIENT
  Age: 42 Year
  Sex: Male

DRUGS (5)
  1. RITALIN [Suspect]
     Dosage: 2520 MG, QD
  2. VINBLASTINE SULFATE [Concomitant]
     Indication: CASTLEMAN'S DISEASE
     Dosage: 200 MG, BIW
  3. RITALIN [Suspect]
     Indication: DEPRESSION
     Dosage: 30 MG/DAY
     Route: 048
  4. RITALIN [Suspect]
     Dosage: 840 MG/DAY
     Route: 048
  5. RITALIN [Suspect]
     Indication: CENTRAL NERVOUS SYSTEM STIMULATION
     Dosage: 160 MG, BID
     Route: 048

REACTIONS (9)
  - COMA [None]
  - DEPRESSION [None]
  - ANXIETY [None]
  - SUICIDE ATTEMPT [None]
  - WITHDRAWAL SYNDROME [None]
  - DRUG ABUSE [None]
  - CRYING [None]
  - WRONG TECHNIQUE IN DRUG USAGE PROCESS [None]
  - INTENTIONAL OVERDOSE [None]
